FAERS Safety Report 7741249-X (Version None)
Quarter: 2011Q3

REPORT INFORMATION
  Report Type: 
  Country: None (occurrence: None)
  Receive Date: 20110909
  Receipt Date: 20110906
  Transmission Date: 20111222
  Serious: Yes (Other)
  Sender: FDA-Public Use
  Company Number: US-PFIZER INC-2011208362

PATIENT
  Sex: Male
  Weight: 80.272 kg

DRUGS (7)
  1. ADVAIR DISKUS 100/50 [Concomitant]
     Dosage: 45/21
  2. SUTENT [Suspect]
     Dosage: 50 MG, EVERY DAY FOR 4 WEEKS ON AND 2 WEEKS OFF
     Route: 048
  3. ATENOLOL [Concomitant]
     Dosage: 25 MG, UNK
  4. SIMVASTATIN [Concomitant]
     Dosage: 5 MG, UNK
  5. DIOVAN [Concomitant]
     Dosage: 40 MG, UNK
  6. ALBUTEROL SULFATE AUTOHALER [Concomitant]
     Dosage: 90 UG, UNK
  7. VICODIN [Concomitant]
     Dosage: 5-500 MG

REACTIONS (4)
  - FATIGUE [None]
  - ABDOMINAL DISTENSION [None]
  - WEIGHT DECREASED [None]
  - DYSPNOEA [None]
